FAERS Safety Report 4494474-8 (Version None)
Quarter: 2004Q4

REPORT INFORMATION
  Report Type: 
  Country: None (occurrence: None)
  Receive Date: 20041102
  Receipt Date: 20041015
  Transmission Date: 20050328
  Serious: Yes (Other)
  Sender: FDA-Public Use
  Company Number: DSA_25171_2004

PATIENT
  Age: 42 Year
  Sex: Male

DRUGS (2)
  1. TEVETEN [Suspect]
     Indication: HYPERTENSION
     Dosage: 600 MG Q DAY PO
     Route: 048
     Dates: start: 20040901, end: 20040908
  2. TRITACE [Concomitant]

REACTIONS (1)
  - HEADACHE [None]
